FAERS Safety Report 7010626 (Version 4)
Quarter: 2014Q3

REPORT INFORMATION
  Report Type: Spontaneous
  Country: US (occurrence: None)
  Receive Date: 20090526
  Receipt Date: 20140820
  Transmission Date: 20150326
  Serious: Yes (Other)
  Sender: FDA-Public Use
  Company Number: 2009S1004103

PATIENT
  Age: 54 Year
  Sex: Female

DRUGS (6)
  1. PREVACID [Concomitant]
     Active Substance: LANSOPRAZOLE
  2. ARTHROTEC (DICLOFENAC SODIUM, MISOPROSTOL) [Concomitant]
  3. SODIUM PHOSPHATE, DIBASIC\SODIUM PHOSPHATE, MONOBASIC, ANHYDROUS [Suspect]
     Active Substance: SODIUM PHOSPHATE, DIBASIC\SODIUM PHOSPHATE, MONOBASIC, ANHYDROUS
     Indication: COLONOSCOPY
     Dosage: PO
     Route: 048
     Dates: start: 20050704, end: 20050705
  4. FOLGARD (PYRODOXINE HYDROCHLORIDE, FOLIC ACID, CYAOCOBALAMIN) [Concomitant]
  5. FERRO SULPHATE (FERROUS SULFATE) [Concomitant]
  6. DIOVAN [Concomitant]
     Active Substance: VALSARTAN

REACTIONS (3)
  - Renal failure chronic [None]
  - Renal failure acute [None]
  - Acute phosphate nephropathy [None]

NARRATIVE: CASE EVENT DATE: 20070724
